FAERS Safety Report 13576960 (Version 1)
Quarter: 2017Q2

REPORT INFORMATION
  Report Type: Spontaneous
  Country: US (occurrence: US)
  Receive Date: 20170524
  Receipt Date: 20170524
  Transmission Date: 20170830
  Serious: Yes (Hospitalization)
  Sender: FDA-Public Use
  Company Number: US-LPDUSPRD-20170665

PATIENT
  Age: 24 Year
  Sex: Male

DRUGS (11)
  1. EFAVIRENZ [Suspect]
     Active Substance: EFAVIRENZ
     Dosage: DOSE NOT PROVIDED
     Route: 065
  2. ZIDOVUDINE INJECTION (0517-0775-10) [Suspect]
     Active Substance: ZIDOVUDINE
     Dosage: DOSE NOT PROVIDED
     Route: 065
  3. STAVUDINE. [Suspect]
     Active Substance: STAVUDINE
     Dosage: DOSE NOT PROVIDED
     Route: 065
  4. DIDANOSINE. [Suspect]
     Active Substance: DIDANOSINE
     Dosage: DOSE NOT PROVIDED
     Route: 065
  5. ATAZANAVIR [Suspect]
     Active Substance: ATAZANAVIR
     Dosage: DOSE NOT PROVIDED
     Route: 065
  6. NELFINAVIR [Suspect]
     Active Substance: NELFINAVIR
     Dosage: DOSE NOT PROVIDED
     Route: 065
  7. ABACAVIR. [Suspect]
     Active Substance: ABACAVIR
     Dosage: DOSE NOT PROVIDED
     Route: 065
  8. EMTRICITABINE [Suspect]
     Active Substance: EMTRICITABINE
     Dosage: DOSE NOT PROVIDED
     Route: 065
  9. ROTINAVIR [Suspect]
     Active Substance: RITONAVIR
     Dosage: DOSE NOT PROVIDED
     Route: 065
  10. LAMIVUDINE. [Suspect]
     Active Substance: LAMIVUDINE
     Dosage: DOSE NOT PROVIDED
     Route: 065
  11. LOPINAVIR [Suspect]
     Active Substance: LOPINAVIR
     Dosage: DOSE NOT PROVIDED
     Route: 065

REACTIONS (3)
  - Coronary artery stenosis [Unknown]
  - Hypokalaemia [None]
  - Myocardial infarction [Recovered/Resolved]
